FAERS Safety Report 21808896 (Version 3)
Quarter: 2025Q3

REPORT INFORMATION
  Report Type: Spontaneous
  Country: EU (occurrence: EU)
  Receive Date: 20230103
  Receipt Date: 20250813
  Transmission Date: 20251021
  Serious: Yes (Hospitalization, Other)
  Sender: ROCHE
  Company Number: None

PATIENT
  Age: 69 Year
  Sex: Male

DRUGS (5)
  1. MYCOPHENOLATE MOFETIL [Interacting]
     Active Substance: MYCOPHENOLATE MOFETIL
     Indication: Kidney transplant rejection
     Route: 065
  2. ACYCLOVIR [Interacting]
     Active Substance: ACYCLOVIR
     Indication: Encephalitis herpes
     Dosage: AT LEAST 21 DAYS
     Route: 065
  3. ACYCLOVIR [Interacting]
     Active Substance: ACYCLOVIR
     Dosage: AT LEAST 21 DAYS
     Route: 065
  4. ACYCLOVIR [Interacting]
     Active Substance: ACYCLOVIR
     Dosage: AT LEAST 21 DAYS
     Route: 065
  5. ACYCLOVIR [Interacting]
     Active Substance: ACYCLOVIR
     Dosage: AT LEAST 21 DAYS
     Route: 065

REACTIONS (6)
  - Neurotoxicity [Unknown]
  - Drug interaction [Unknown]
  - Blood creatinine increased [Recovered/Resolved]
  - Confusional state [Not Recovered/Not Resolved]
  - Encephalitis herpes [Unknown]
  - Myoclonus [Recovered/Resolved]
